FAERS Safety Report 6264137-7 (Version None)
Quarter: 2009Q3

REPORT INFORMATION
  Report Type: 
  Country: None (occurrence: None)
  Receive Date: 20090710
  Receipt Date: 20090629
  Transmission Date: 20100115
  Serious: Yes (Hospitalization)
  Sender: FDA-Public Use
  Company Number: JP-PFIZER INC-2009230732

PATIENT
  Age: 71 Year

DRUGS (5)
  1. MIGLITOL [Suspect]
     Indication: DIABETES MELLITUS
     Dosage: 150 MG, UNK
     Route: 048
     Dates: end: 20090615
  2. MIGLITOL [Suspect]
     Dosage: UNK
     Dates: start: 20090101
  3. AMARYL [Concomitant]
     Dosage: 1 MG, UNK
     Route: 048
     Dates: end: 20090615
  4. ACTOS [Concomitant]
     Dosage: UNK
     Route: 048
     Dates: start: 20090318, end: 20090615
  5. EUGLUCON [Concomitant]
     Route: 065

REACTIONS (2)
  - INSOMNIA [None]
  - PRURITUS GENERALISED [None]
